FAERS Safety Report 15989140 (Version 1)
Quarter: 2019Q1

REPORT INFORMATION
  Report Type: Spontaneous
  Country: IT (occurrence: IT)
  Receive Date: 20190221
  Receipt Date: 20190221
  Transmission Date: 20190418
  Serious: Yes (Life-Threatening, Hospitalization, Other)
  Sender: FDA-Public Use
  Company Number: IT-ACCORD-069014

PATIENT
  Age: 75 Year
  Sex: Male

DRUGS (4)
  1. GABAPENTIN. [Interacting]
     Active Substance: GABAPENTIN
     Indication: DEPRESSION
  2. TRAZODONE [Interacting]
     Active Substance: TRAZODONE HYDROCHLORIDE
     Indication: DEPRESSION
  3. AMITRIPTYLINE [Suspect]
     Active Substance: AMITRIPTYLINE
     Indication: DEPRESSION
  4. TRAMADOL. [Interacting]
     Active Substance: TRAMADOL
     Indication: DEPRESSION

REACTIONS (6)
  - Drug interaction [Unknown]
  - Pneumonia [None]
  - Pleural effusion [None]
  - Stupor [None]
  - Serotonin syndrome [Recovered/Resolved]
  - Neutrophil count increased [None]
